FAERS Safety Report 19047952 (Version 1)
Quarter: 2021Q1

REPORT INFORMATION
  Report Type: Spontaneous
  Country: JP (occurrence: JP)
  Receive Date: 20210323
  Receipt Date: 20210323
  Transmission Date: 20210420
  Serious: Yes (Other)
  Sender: FDA-Public Use
  Company Number: JP-ASTRAZENECA-2021A164103

PATIENT
  Age: 71 Year
  Sex: Female

DRUGS (5)
  1. IPILIMUMAB [Concomitant]
     Active Substance: IPILIMUMAB
  2. CARBOPLATIN. [Concomitant]
     Active Substance: CARBOPLATIN
  3. IMFINZI [Suspect]
     Active Substance: DURVALUMAB
     Indication: NON-SMALL CELL LUNG CANCER
     Route: 041
  4. NIVOLUMAB [Concomitant]
     Active Substance: NIVOLUMAB
  5. PEMETREXED. [Concomitant]
     Active Substance: PEMETREXED

REACTIONS (3)
  - Metastases to bone [Unknown]
  - Metastases to adrenals [Unknown]
  - Neoplasm recurrence [Unknown]
